FAERS Safety Report 13269848 (Version 6)
Quarter: 2017Q2

REPORT INFORMATION
  Report Type: Report from Study
  Country: US (occurrence: US)
  Receive Date: 20170224
  Receipt Date: 20170630
  Transmission Date: 20170830
  Serious: Yes (Hospitalization, Other)
  Sender: FDA-Public Use
  Company Number: US-CORCEPT THERAPEUTICS INC.-US-2017CRT000069

PATIENT

DRUGS (9)
  1. KORLYM [Suspect]
     Active Substance: MIFEPRISTONE
     Indication: DIABETES MELLITUS
  2. FENOFIBRATE. [Concomitant]
     Active Substance: FENOFIBRATE
     Indication: PRODUCT USED FOR UNKNOWN INDICATION
     Dosage: UNK
  3. KORLYM [Suspect]
     Active Substance: MIFEPRISTONE
     Indication: CUSHING^S SYNDROME
     Dosage: 300 MG, QD
     Route: 048
     Dates: start: 20170111, end: 201701
  4. KORLYM [Suspect]
     Active Substance: MIFEPRISTONE
     Indication: ESSENTIAL HYPERTENSION
     Dosage: 300 MG, QD
     Route: 048
     Dates: start: 20170301
  5. VALSARTAN HCTZ [Concomitant]
     Active Substance: HYDROCHLOROTHIAZIDE\VALSARTAN
     Indication: PRODUCT USED FOR UNKNOWN INDICATION
     Dosage: UNK
  6. CLONIDINE. [Concomitant]
     Active Substance: CLONIDINE
     Indication: PRODUCT USED FOR UNKNOWN INDICATION
     Dosage: UNK
  7. KORLYM [Suspect]
     Active Substance: MIFEPRISTONE
     Indication: TYPE 2 DIABETES MELLITUS
     Dosage: 600 MG, QD
     Route: 048
     Dates: start: 201701, end: 20170215
  8. PROCARDIA [Concomitant]
     Active Substance: NIFEDIPINE
     Indication: PRODUCT USED FOR UNKNOWN INDICATION
     Dosage: UNK
  9. SPIRONOLACTONE. [Concomitant]
     Active Substance: SPIRONOLACTONE
     Indication: PRODUCT USED FOR UNKNOWN INDICATION
     Dosage: UNK

REACTIONS (17)
  - Fatigue [Not Recovered/Not Resolved]
  - Moaning [Unknown]
  - Tremor [Unknown]
  - Blood calcium increased [Unknown]
  - Hypokalaemia [Unknown]
  - Asthenia [Not Recovered/Not Resolved]
  - Pneumonia [Recovered/Resolved]
  - Influenza [Recovered/Resolved]
  - Nausea [Unknown]
  - Retching [Unknown]
  - Anaemia [Unknown]
  - Hepatic enzyme increased [Unknown]
  - Constipation [Not Recovered/Not Resolved]
  - Renal impairment [Unknown]
  - Pain [Unknown]
  - Alopecia [Not Recovered/Not Resolved]
  - Lethargy [Not Recovered/Not Resolved]

NARRATIVE: CASE EVENT DATE: 2017
